FAERS Safety Report 7918769-8 (Version None)
Quarter: 2011Q4

REPORT INFORMATION
  Report Type: 
  Country: None (occurrence: None)
  Receive Date: 20111116
  Receipt Date: 20111108
  Transmission Date: 20120403
  Serious: Yes (Hospitalization)
  Sender: FDA-Public Use
  Company Number: US-US-EMD SERONO, INC.-7079333

PATIENT
  Sex: Female
  Weight: 54 kg

DRUGS (3)
  1. REBIF [Suspect]
     Route: 058
     Dates: start: 20091013, end: 20110901
  2. REBIF [Suspect]
     Indication: PRODUCT USED FOR UNKNOWN INDICATION
     Dates: start: 20050101
  3. REBIF [Suspect]
     Route: 058
     Dates: start: 20111017

REACTIONS (5)
  - INJECTION SITE HAEMATOMA [None]
  - DEPRESSED MOOD [None]
  - INSOMNIA [None]
  - GASTROINTESTINAL DISORDER [None]
  - INFLUENZA LIKE ILLNESS [None]
